FAERS Safety Report 9145808 (Version 2)
Quarter: 2013Q1

REPORT INFORMATION
  Report Type: Spontaneous
  Country: GB (occurrence: GB)
  Receive Date: 20130307
  Receipt Date: 20130318
  Transmission Date: 20140127
  Serious: Yes (Hospitalization, Other)
  Sender: FDA-Public Use
  Company Number: PHFR2013GB001174

PATIENT
  Age: 19 Year
  Sex: Male
  Weight: 75.4 kg

DRUGS (6)
  1. EXJADE [Suspect]
     Indication: IRON OVERLOAD
     Dosage: 500 MG, QD
     Dates: start: 200805, end: 200902
  2. EXJADE [Suspect]
     Indication: THALASSAEMIA BETA
     Dosage: 750 MG, QD
     Dates: start: 201110
  3. EXJADE [Suspect]
     Dosage: 1750 MG, QD
     Dates: start: 201211
  4. EXJADE [Suspect]
     Dosage: 2250 MG, QD
     Dates: end: 20120621
  5. EXJADE [Suspect]
     Dosage: 1250 MG, QD
     Dates: start: 201207
  6. EXJADE [Suspect]
     Dosage: 500 MG, QD

REACTIONS (13)
  - Testicular pain [Unknown]
  - Renal failure acute [Unknown]
  - Renal impairment [Unknown]
  - Renal disorder [Recovering/Resolving]
  - Decreased appetite [Unknown]
  - Dehydration [Unknown]
  - Mouth ulceration [Recovered/Resolved]
  - Malaise [Recovered/Resolved]
  - Back pain [Unknown]
  - Weight decreased [Unknown]
  - Hepatic function abnormal [Recovered/Resolved]
  - Pruritus [Recovered/Resolved]
  - Abdominal pain [Recovered/Resolved]
